FAERS Safety Report 9761757 (Version 1)
Quarter: 2013Q4

REPORT INFORMATION
  Report Type: Spontaneous
  Country: US (occurrence: US)
  Receive Date: 20131216
  Receipt Date: 20131216
  Transmission Date: 20140711
  Serious: No
  Sender: FDA-Public Use
  Company Number: US-BIOGENIDEC-2013BI108664

PATIENT
  Age: 52 Year
  Sex: Female
  Weight: 57 kg

DRUGS (8)
  1. TECFIDERA [Suspect]
     Indication: MULTIPLE SCLEROSIS
     Route: 048
     Dates: start: 20131025
  2. TECFIDERA [Suspect]
     Indication: MULTIPLE SCLEROSIS
     Route: 048
     Dates: start: 2013
  3. AMPYRA [Concomitant]
     Route: 048
     Dates: end: 20131101
  4. CYMBALTA [Concomitant]
  5. IRON FERROUS SULFATE [Concomitant]
  6. VITAMIN D [Concomitant]
  7. VITAMIN E [Concomitant]
  8. APAP WITH CODEINE [Concomitant]

REACTIONS (1)
  - Gastric disorder [Unknown]
